FAERS Safety Report 6405345-1 (Version None)
Quarter: 2009Q4

REPORT INFORMATION
  Report Type: 
  Country: None (occurrence: None)
  Receive Date: 20091019
  Receipt Date: 20091014
  Transmission Date: 20100525
  Serious: Yes (Death, Other)
  Sender: FDA-Public Use
  Company Number: PHHY2009ES44627

PATIENT
  Age: 70 Year
  Sex: Female

DRUGS (1)
  1. AREDIA [Suspect]
     Dosage: 60 MG, UNK
     Route: 042

REACTIONS (3)
  - CARDIOVASCULAR DISORDER [None]
  - EYE PAIN [None]
  - IRITIS [None]
